FAERS Safety Report 17076100 (Version 1)
Quarter: 2019Q4

REPORT INFORMATION
  Report Type: Spontaneous
  Country: NL (occurrence: NL)
  Receive Date: 20191126
  Receipt Date: 20191126
  Transmission Date: 20200122
  Serious: Yes (Other)
  Sender: FDA-Public Use
  Company Number: NL-MYLANLABS-2019M1113837

PATIENT
  Age: 14 Year
  Sex: Female
  Weight: 59 kg

DRUGS (3)
  1. LAMOTRIGINE. [Concomitant]
     Active Substance: LAMOTRIGINE
     Dosage: UNK
  2. LEVETIRACETAM. [Suspect]
     Active Substance: LEVETIRACETAM
     Indication: EPILEPSY
     Dosage: BEGONNEN MET TWEE KEER PER DAG HALVE TABLET
     Dates: start: 20190720
  3. LEVETIRACETAM. [Suspect]
     Active Substance: LEVETIRACETAM
     Dosage: EN NA WEEK VERHOOGD NAAR TWEE KEER 1 TABLET PER DAG
     Route: 048
     Dates: start: 20190727, end: 20190730

REACTIONS (3)
  - Suicidal ideation [Not Recovered/Not Resolved]
  - Nausea [Recovered/Resolved]
  - Agitation [Recovered/Resolved]

NARRATIVE: CASE EVENT DATE: 20190721
